FAERS Safety Report 4850640-0 (Version None)
Quarter: 2005Q4

REPORT INFORMATION
  Report Type: 
  Country: None (occurrence: None)
  Receive Date: 20051212
  Receipt Date: 20051201
  Transmission Date: 20060501
  Serious: Yes (Hospitalization)
  Sender: FDA-Public Use
  Company Number: US-JNJFOC-20051200874

PATIENT
  Sex: Female

DRUGS (16)
  1. INFLIXIMAB [Suspect]
     Indication: RHEUMATOID ARTHRITIS
     Route: 042
  2. PREVACID [Concomitant]
  3. ALLOPURINOL [Concomitant]
  4. GLYBURIDE [Concomitant]
  5. MULTI-VITAMIN [Concomitant]
  6. MULTI-VITAMIN [Concomitant]
  7. MULTI-VITAMIN [Concomitant]
  8. MULTI-VITAMIN [Concomitant]
  9. MULTI-VITAMIN [Concomitant]
  10. MULTI-VITAMIN [Concomitant]
  11. MULTI-VITAMIN [Concomitant]
  12. MULTI-VITAMIN [Concomitant]
  13. TYLENOL ARTHRITIS [Concomitant]
  14. CALCIUM+ D. [Concomitant]
  15. CALCIUM+ D. [Concomitant]
  16. CALCIUM+ D. [Concomitant]

REACTIONS (1)
  - COLON CANCER STAGE III [None]
